FAERS Safety Report 17036371 (Version 1)
Quarter: 2019Q4

REPORT INFORMATION
  Report Type: Spontaneous
  Country: US (occurrence: US)
  Receive Date: 20191115
  Receipt Date: 20191115
  Transmission Date: 20200122
  Serious: Yes (Other)
  Sender: FDA-Public Use
  Company Number: US-PARI RESPIRATORY EQUIPMENT, INC.-2019PAR00113

PATIENT
  Sex: Male
  Weight: 39 kg

DRUGS (11)
  1. OMEPRAZOLE. [Concomitant]
     Active Substance: OMEPRAZOLE
  2. MIRALAX [Concomitant]
     Active Substance: POLYETHYLENE GLYCOL 3350
  3. PROAIR HFA [Concomitant]
     Active Substance: ALBUTEROL SULFATE
  4. KITABIS PAK [Suspect]
     Active Substance: TOBRAMYCIN
     Indication: CYSTIC FIBROSIS
     Dosage: 1 DOSAGE UNITS, 2X/DAY, ^ONE WEEK ON AND ONE WEEK OFF^
     Dates: start: 2019
  5. AQUADEKS [Concomitant]
     Active Substance: MINERALS\VITAMINS
  6. IPRATORPIUM-ALBUTEROL [Concomitant]
  7. VITAMIN D3 [Concomitant]
     Active Substance: CHOLECALCIFEROL
  8. PULMOZYME [Concomitant]
     Active Substance: DORNASE ALFA
  9. FIBERCON [Concomitant]
     Active Substance: CALCIUM POLYCARBOPHIL
  10. HYPER-SAL [Concomitant]
     Active Substance: SODIUM CHLORIDE
  11. CREON [Concomitant]
     Active Substance: PANCRELIPASE AMYLASE\PANCRELIPASE LIPASE\PANCRELIPASE PROTEASE

REACTIONS (2)
  - Off label use [Not Recovered/Not Resolved]
  - Cystitis [Recovered/Resolved]

NARRATIVE: CASE EVENT DATE: 2019
